FAERS Safety Report 6430203-6 (Version None)
Quarter: 2009Q4

REPORT INFORMATION
  Report Type: 
  Country: None (occurrence: None)
  Receive Date: 20091106
  Receipt Date: 20091029
  Transmission Date: 20100525
  Serious: Yes (Hospitalization)
  Sender: FDA-Public Use
  Company Number: US-ROCHE-653357

PATIENT
  Sex: Male

DRUGS (5)
  1. PEG-INTERFERON ALFA 2A (RO 25-8310) [Suspect]
     Route: 058
     Dates: start: 20090130, end: 20090807
  2. RIBAVIRIN [Suspect]
     Route: 048
     Dates: start: 20090130, end: 20090810
  3. ELTROMBOPAG [Suspect]
     Indication: THROMBOCYTOPENIA
     Route: 048
     Dates: start: 20090106, end: 20090129
  4. BLINDED ELTROMBOPAG [Suspect]
     Indication: THROMBOCYTOPENIA
     Dosage: AT VARIABLE DOSES
     Route: 048
     Dates: start: 20090130, end: 20090619
  5. BLINDED ELTROMBOPAG [Suspect]
     Dosage: DOSE BLINDED, THERAPY DURATION 193 DAYS
     Route: 048
     Dates: start: 20090620, end: 20090810

REACTIONS (1)
  - MENINGITIS CRYPTOCOCCAL [None]
